FAERS Safety Report 5955112-8 (Version None)
Quarter: 2008Q4

REPORT INFORMATION
  Report Type: 
  Country: None (occurrence: None)
  Receive Date: 20081117
  Receipt Date: 20081113
  Transmission Date: 20090506
  Serious: Yes (Other)
  Sender: FDA-Public Use
  Company Number: US-BAYER-200813653NA

PATIENT
  Age: 66 Year
  Sex: Male
  Weight: 67 kg

DRUGS (11)
  1. NEXAVAR [Suspect]
     Indication: METASTATIC RENAL CELL CARCINOMA
     Dosage: TOTAL DAILY DOSE: 800 MG  UNIT DOSE: 200 MG
     Route: 048
  2. NEXAVAR [Suspect]
     Dosage: TOTAL DAILY DOSE: 600 MG  UNIT DOSE: 200 MG
     Route: 048
  3. NEXAVAR [Suspect]
     Dosage: TOTAL DAILY DOSE: 400 MG  UNIT DOSE: 200 MG
     Route: 048
  4. NEXAVAR [Suspect]
     Dosage: TOTAL DAILY DOSE: 800 MG  UNIT DOSE: 200 MG
     Route: 048
     Dates: start: 20080119
  5. FEOSOL [Concomitant]
  6. PREDNISONE TAB [Concomitant]
  7. BACTRIM [Concomitant]
  8. OXYCODONE HCL [Concomitant]
  9. MULTI-VITAMIN [Concomitant]
  10. HYDROCHLOROTHIAZIDE/RESERPINE [Concomitant]
  11. FLOMAX [Concomitant]

REACTIONS (17)
  - ALOPECIA [None]
  - ANOREXIA [None]
  - ARTHRALGIA [None]
  - CARDIAC FAILURE [None]
  - CARDIOMYOPATHY [None]
  - CONSTIPATION [None]
  - DYSPNOEA [None]
  - EJECTION FRACTION DECREASED [None]
  - GLOSSODYNIA [None]
  - HYPOAESTHESIA [None]
  - MYALGIA [None]
  - ORAL PAIN [None]
  - PAIN IN EXTREMITY [None]
  - PALMAR-PLANTAR ERYTHRODYSAESTHESIA SYNDROME [None]
  - PLEURAL EFFUSION [None]
  - RHINORRHOEA [None]
  - SKIN EXFOLIATION [None]
